FAERS Safety Report 8054400-1 (Version None)
Quarter: 2012Q1

REPORT INFORMATION
  Report Type: 
  Country: None (occurrence: None)
  Receive Date: 20120118
  Receipt Date: 20120109
  Transmission Date: 20120608
  Serious: Yes (Hospitalization)
  Sender: FDA-Public Use
  Company Number: FR-ASTRAZENECA-2012SE02548

PATIENT
  Age: 50 Year
  Sex: Male

DRUGS (9)
  1. INDAPAMIDE [Suspect]
     Route: 048
  2. LOPERAMIDE [Suspect]
     Dosage: DAILY
     Route: 048
     Dates: start: 20111101
  3. MARAVIROC [Suspect]
     Route: 048
  4. FENOFIBRATE [Suspect]
     Route: 048
  5. LEXOMIL ROCHE [Suspect]
     Dosage: DAILY
     Route: 048
  6. IMOVANE [Suspect]
     Route: 048
  7. ABACAVIR SULFATE AND LAMIVUDINE [Suspect]
     Route: 048
  8. NEXIUM [Suspect]
     Dosage: DAILY
     Route: 048
     Dates: start: 20111101
  9. CREON [Suspect]
     Route: 048

REACTIONS (4)
  - POLYDIPSIA [None]
  - DRY MOUTH [None]
  - POLYURIA [None]
  - THIRST [None]
